FAERS Safety Report 15325122 (Version 1)
Quarter: 2018Q3

REPORT INFORMATION
  Report Type: Spontaneous
  Country: US (occurrence: US)
  Receive Date: 20180822
  Receipt Date: 20180822
  Transmission Date: 20181010
  Serious: Yes (Other)
  Sender: FDA-Public Use
  Company Number: None

PATIENT
  Age: 32 Year
  Sex: Female
  Weight: 117 kg

DRUGS (7)
  1. MOBIC [Concomitant]
     Active Substance: MELOXICAM
  2. PLAQUENIL [Suspect]
     Active Substance: HYDROXYCHLOROQUINE SULFATE
  3. ON GUARD TOOTHPASTE (FLUORIDE?FREE) [Suspect]
     Active Substance: COSMETICS
  4. RESTASIS [Concomitant]
     Active Substance: CYCLOSPORINE
  5. COSMETICS [Suspect]
     Active Substance: COSMETICS
  6. SYNTHROID [Concomitant]
     Active Substance: LEVOTHYROXINE SODIUM
  7. CYTOMEL [Concomitant]
     Active Substance: LIOTHYRONINE SODIUM

REACTIONS (5)
  - Headache [None]
  - Gingival discomfort [None]
  - Allergic reaction to excipient [None]
  - Noninfective gingivitis [None]
  - Gingival swelling [None]
